FAERS Safety Report 9976508 (Version 1)
Quarter: 2014Q1

REPORT INFORMATION
  Report Type: Report from Study
  Country: US (occurrence: US)
  Receive Date: 20140306
  Receipt Date: 20140306
  Transmission Date: 20141002
  Serious: Yes (Other)
  Sender: FDA-Public Use
  Company Number: US-ABBVIE-13P-163-1165657-00

PATIENT
  Sex: Female

DRUGS (10)
  1. HUMIRA [Suspect]
     Indication: PSORIASIS
     Dates: end: 201302
  2. HUMIRA [Suspect]
     Dates: start: 201304
  3. HUMIRA [Suspect]
     Dosage: LOADING DOSE
     Dates: start: 20131023, end: 20131023
  4. HUMIRA [Suspect]
     Dates: start: 20131030
  5. SYNTHROID [Concomitant]
     Indication: HYPOTHYROIDISM
  6. ZOLOFT [Concomitant]
     Indication: DEPRESSION
  7. MULTIVITAMIN [Concomitant]
     Indication: PRODUCT USED FOR UNKNOWN INDICATION
  8. CALCIUM [Concomitant]
     Indication: PRODUCT USED FOR UNKNOWN INDICATION
  9. FISH OIL [Concomitant]
     Indication: PRODUCT USED FOR UNKNOWN INDICATION
  10. VITAMIN B12 [Concomitant]
     Indication: PRODUCT USED FOR UNKNOWN INDICATION

REACTIONS (3)
  - Thyroid operation [Unknown]
  - Wound infection staphylococcal [Unknown]
  - Staphylococcal infection [Unknown]
